FAERS Safety Report 16953689 (Version 5)
Quarter: 2019Q4

REPORT INFORMATION
  Report Type: Report from Study
  Country: CO (occurrence: CO)
  Receive Date: 20191023
  Receipt Date: 20191226
  Transmission Date: 20200122
  Serious: Yes (Hospitalization, Other)
  Sender: FDA-Public Use
  Company Number: CO-SA-2019SA197323

PATIENT
  Age: 46 Year
  Sex: Female

DRUGS (1)
  1. ALEMTUZUMAB [Suspect]
     Active Substance: ALEMTUZUMAB
     Indication: MULTIPLE SCLEROSIS
     Dosage: 12MG/1.2ML; QD
     Route: 041
     Dates: start: 20190614, end: 20190616

REACTIONS (13)
  - Crystal urine present [Recovered/Resolved]
  - Hypoaesthesia [Recovered/Resolved]
  - Escherichia infection [Recovered/Resolved]
  - Bacteriuria [Recovered/Resolved]
  - Cough [Recovered/Resolved]
  - Pelvic pain [Recovered/Resolved]
  - Urine abnormality [Recovered/Resolved]
  - Influenza [Recovered/Resolved]
  - Lymphocyte count decreased [Not Recovered/Not Resolved]
  - White blood cell count decreased [Not Recovered/Not Resolved]
  - Urinary tract infection [Recovered/Resolved]
  - Blood thyroid stimulating hormone increased [Recovered/Resolved]
  - Leukocyturia [Recovered/Resolved]

NARRATIVE: CASE EVENT DATE: 20190717
